FAERS Safety Report 16770531 (Version 2)
Quarter: 2019Q4

REPORT INFORMATION
  Report Type: Spontaneous
  Country: FR (occurrence: FR)
  Receive Date: 20190904
  Receipt Date: 20191211
  Transmission Date: 20200122
  Serious: Yes (Disabling)
  Sender: FDA-Public Use
  Company Number: FR-ACCORD-153758

PATIENT
  Age: 84 Year
  Sex: Female
  Weight: 52 kg

DRUGS (12)
  1. CLOPIDOGREL [Suspect]
     Active Substance: CLOPIDOGREL BISULFATE
     Indication: PROPHYLAXIS
     Route: 048
     Dates: end: 20190817
  2. NAFTIDROFURYL [Concomitant]
     Active Substance: NAFRONYL
  3. CALCIUM CARBONATE. [Concomitant]
     Active Substance: CALCIUM CARBONATE
  4. LACTULOSE. [Concomitant]
     Active Substance: LACTULOSE
  5. PANTOPRAZOLE [Concomitant]
     Active Substance: PANTOPRAZOLE
  6. KARDEGIC [Suspect]
     Active Substance: ASPIRIN DL-LYSINE
     Indication: PROPHYLAXIS
     Dosage: STRENGTH 160 MG
     Route: 048
     Dates: end: 20190817
  7. ATORVASTATIN/ATORVASTATIN CALCIUM [Concomitant]
     Active Substance: ATORVASTATIN CALCIUM
  8. PARACETAMOL [Concomitant]
     Active Substance: ACETAMINOPHEN
  9. ENOXAPARIN [Suspect]
     Active Substance: ENOXAPARIN
     Indication: PROPHYLAXIS
     Route: 058
     Dates: start: 20190817, end: 20190817
  10. PREDNISONE. [Concomitant]
     Active Substance: PREDNISONE
  11. GENTAMICIN. [Concomitant]
     Active Substance: GENTAMICIN
     Indication: BACTERAEMIA
     Route: 042
     Dates: start: 20190816
  12. AMOXICILLIN. [Concomitant]
     Active Substance: AMOXICILLIN
     Indication: BACTERAEMIA
     Route: 042
     Dates: start: 20190816, end: 20190829

REACTIONS (2)
  - Spinal subdural haematoma [Not Recovered/Not Resolved]
  - Paraplegia [Not Recovered/Not Resolved]

NARRATIVE: CASE EVENT DATE: 20190818
